FAERS Safety Report 19563919 (Version 1)
Quarter: 2021Q3

REPORT INFORMATION
  Report Type: Spontaneous
  Country: CN (occurrence: CN)
  Receive Date: 20210714
  Receipt Date: 20210714
  Transmission Date: 20211014
  Serious: Yes (Hospitalization)
  Sender: FDA-Public Use
  Company Number: CN-PFIZER INC-2021808066

PATIENT
  Age: 32 Year
  Sex: Female

DRUGS (2)
  1. ROCEPHIN [Suspect]
     Active Substance: CEFTRIAXONE SODIUM
     Indication: ADJUVANT THERAPY
     Dosage: 1.5 G, 1X/DAY
     Route: 041
     Dates: start: 20210608, end: 20210610
  2. TAZOCIN [Suspect]
     Active Substance: PIPERACILLIN SODIUM\TAZOBACTAM SODIUM
     Indication: ADJUVANT THERAPY
     Dosage: 4.5 G, 3X/DAY
     Route: 041
     Dates: start: 20210612, end: 20210617

REACTIONS (1)
  - Haemolytic anaemia [Not Recovered/Not Resolved]

NARRATIVE: CASE EVENT DATE: 20210616
